FAERS Safety Report 8816684 (Version 1)
Quarter: 2012Q4

REPORT INFORMATION
  Report Type: Spontaneous
  Country: US (occurrence: None)
  Receive Date: 20120928
  Receipt Date: 20120928
  Transmission Date: 20130627
  Serious: Yes (Other)
  Sender: FDA-Public Use
  Company Number: ACO_32110_2012

PATIENT
  Sex: Male
  Weight: 98 kg

DRUGS (9)
  1. AMPYRA [Suspect]
     Indication: DRUG USE FOR UNKNOWN INDICATION
  2. XANAX (ALPRAZOLAM) [Concomitant]
  3. BACLOFEN (BACLOFEN) [Concomitant]
  4. CITALOPRAM (CITALOPRAM HYDROBROMIDE) [Concomitant]
  5. IBUPROFEN (IBUPROFEN) [Concomitant]
  6. MODAFINIL (MODAFINIL) [Concomitant]
  7. PRILOSEC (OMEPRAZOLE MAGNESIUM) [Concomitant]
  8. OXYBUTIN (OXYBUTYNIN HYDROCHLORIDE) [Concomitant]
  9. TIZANIDINE (TIZANIDINE HYDROCHLORIDE) [Concomitant]

REACTIONS (2)
  - JC virus infection [None]
  - General physical health deterioration [None]
